FAERS Safety Report 4995560-6 (Version None)
Quarter: 2006Q2

REPORT INFORMATION
  Report Type: 
  Country: None (occurrence: None)
  Receive Date: 20060504
  Receipt Date: 20060425
  Transmission Date: 20061013
  Serious: Yes (Death)
  Sender: FDA-Public Use
  Company Number: 163-20785-06030884

PATIENT
  Age: 59 Year
  Sex: Female

DRUGS (7)
  1. THALOMID [Suspect]
     Indication: HEREDITARY HAEMORRHAGIC TELANGIECTASIA
     Dosage: 50 MG, AT BEDTIME, ORAL
     Route: 048
     Dates: start: 20030701, end: 20050101
  2. TAXOTERE [Concomitant]
  3. CARBOPLATIN [Concomitant]
  4. GEMZAR [Concomitant]
  5. NAVELBINE [Concomitant]
  6. TARCEVA [Concomitant]
  7. RADIATION THERAPY [Concomitant]

REACTIONS (1)
  - PNEUMONIA [None]
